FAERS Safety Report 18456146 (Version 1)
Quarter: 2020Q4

REPORT INFORMATION
  Report Type: Spontaneous
  Country: US (occurrence: US)
  Receive Date: 20201103
  Receipt Date: 20201103
  Transmission Date: 20210114
  Serious: Yes (Other)
  Sender: FDA-Public Use
  Company Number: US-HIKMA PHARMACEUTICALS USA INC.-US-H14001-20-04903

PATIENT
  Age: 47 Year
  Sex: Male
  Weight: 65.8 kg

DRUGS (9)
  1. INSULIN [Concomitant]
     Active Substance: INSULIN NOS
     Route: 065
  2. PREDNISONE. [Suspect]
     Active Substance: PREDNISONE
     Indication: PANCREAS ISLET CELL TRANSPLANT
     Dosage: UNKNOWN
     Route: 065
  3. THYMOGLOBULIN [Suspect]
     Active Substance: LAPINE T-LYMPHOCYTE IMMUNE GLOBULIN
     Indication: PANCREAS ISLET CELL TRANSPLANT
     Route: 065
  4. CYCLOSPORINE. [Suspect]
     Active Substance: CYCLOSPORINE
     Indication: PANCREAS ISLET CELL TRANSPLANT
     Dosage: UNKNOWN
     Route: 065
  5. INSULIN [Concomitant]
     Active Substance: INSULIN NOS
     Route: 065
  6. BASILIXIMAB [Suspect]
     Active Substance: BASILIXIMAB
     Indication: PANCREAS ISLET CELL TRANSPLANT
     Dosage: UNKNOWN
     Route: 065
  7. SIROLIMUS. [Suspect]
     Active Substance: SIROLIMUS
     Indication: PANCREAS ISLET CELL TRANSPLANT
     Dosage: UNKNOWN
     Route: 065
  8. INSULIN [Concomitant]
     Active Substance: INSULIN NOS
     Route: 065
  9. INSULIN [Concomitant]
     Active Substance: INSULIN NOS
     Indication: DIABETES MELLITUS
     Route: 065

REACTIONS (1)
  - Squamous cell carcinoma [Unknown]
